FAERS Safety Report 9324430 (Version 1)
Quarter: 2013Q2

REPORT INFORMATION
  Report Type: Spontaneous
  Country: US (occurrence: None)
  Receive Date: 20130531
  Receipt Date: 20130531
  Transmission Date: 20140414
  Serious: Yes (Death)
  Sender: FDA-Public Use
  Company Number: None

PATIENT
  Age: 68 Year
  Sex: Male
  Weight: 106.5 kg

DRUGS (1)
  1. VANCOMYCIN HYDROCHLORIDE [Suspect]
     Indication: LOCALISED INFECTION
     Dosage: 1GM ONCE IV
     Route: 042
     Dates: start: 20130411

REACTIONS (4)
  - Feeling hot [None]
  - Dyspnoea [None]
  - Respiratory arrest [None]
  - Cardiac arrest [None]
